FAERS Safety Report 24137687 (Version 1)
Quarter: 2024Q3

REPORT INFORMATION
  Report Type: Spontaneous
  Country: CN (occurrence: CN)
  Receive Date: 20240725
  Receipt Date: 20240725
  Transmission Date: 20241016
  Serious: Yes (Other)
  Sender: AMGEN
  Company Number: CN-AMGEN-CHNSP2024143665

PATIENT
  Age: 19 Year
  Sex: Male

DRUGS (2)
  1. BLINATUMOMAB [Suspect]
     Active Substance: BLINATUMOMAB
     Indication: Precursor B-lymphoblastic lymphoma
     Dosage: 28 MICROGRAM (DAYS 1-7)
     Route: 065
  2. BLINATUMOMAB [Suspect]
     Active Substance: BLINATUMOMAB
     Dosage: 28 MICROGRAM (DAYS 1 -7)
     Route: 065

REACTIONS (2)
  - Chronic graft versus host disease in liver [Unknown]
  - Off label use [Unknown]
